FAERS Safety Report 6671992-5 (Version None)
Quarter: 2010Q2

REPORT INFORMATION
  Report Type: 
  Country: None (occurrence: None)
  Receive Date: 20100405
  Receipt Date: 20100326
  Transmission Date: 20101027
  Serious: Yes (Other)
  Sender: FDA-Public Use
  Company Number: 20108532

PATIENT
  Age: 15 Year
  Sex: Female

DRUGS (8)
  1. LIORESAL [Suspect]
     Indication: MUSCLE SPASTICITY
     Dosage: 575 MCG, DAILY, INTRATHECAL
     Route: 037
  2. ACETAMINOPHEN [Concomitant]
  3. BACITRACIN [Concomitant]
  4. CALCIUM CARBONATE [Concomitant]
  5. CEPHALEXIN [Concomitant]
  6. CHOLECALCIFEROL [Concomitant]
  7. ENSURE [Concomitant]
  8. NORGESTIMATE ESTRADIOL [Concomitant]

REACTIONS (6)
  - DEVICE MALFUNCTION [None]
  - DRUG WITHDRAWAL SYNDROME [None]
  - FLUSHING [None]
  - HICCUPS [None]
  - HYPERTONIA [None]
  - SKIN WARM [None]
